FAERS Safety Report 19899497 (Version 1)
Quarter: 2021Q3

REPORT INFORMATION
  Report Type: Spontaneous
  Country: CA (occurrence: CA)
  Receive Date: 20210929
  Receipt Date: 20210929
  Transmission Date: 20211014
  Serious: Yes (Hospitalization)
  Sender: FDA-Public Use
  Company Number: CA-TEVA-2021-CA-1957745

PATIENT
  Age: 66 Year
  Sex: Female

DRUGS (1)
  1. PREDNISONE. [Suspect]
     Active Substance: PREDNISONE
     Indication: DRUG-INDUCED LIVER INJURY
     Route: 065

REACTIONS (2)
  - Agitation [Unknown]
  - Acute psychosis [Unknown]
